FAERS Safety Report 15295149 (Version 3)
Quarter: 2018Q3

REPORT INFORMATION
  Report Type: Spontaneous
  Country: US (occurrence: US)
  Receive Date: 20180820
  Receipt Date: 20180911
  Transmission Date: 20181010
  Serious: Yes (Hospitalization, Other)
  Sender: FDA-Public Use
  Company Number: US-PFIZER INC-2018332932

PATIENT
  Age: 70 Year
  Sex: Female

DRUGS (5)
  1. LYRICA [Suspect]
     Active Substance: PREGABALIN
     Indication: NEUROPATHY PERIPHERAL
  2. LYRICA [Suspect]
     Active Substance: PREGABALIN
     Indication: GAIT INABILITY
  3. LYRICA [Suspect]
     Active Substance: PREGABALIN
     Indication: NERVE INJURY
  4. LYRICA [Suspect]
     Active Substance: PREGABALIN
     Indication: FIBROMYALGIA
     Dosage: 75 MG, 3 TIMES A DAY
     Dates: start: 2007
  5. LYRICA [Suspect]
     Active Substance: PREGABALIN
     Indication: PARAESTHESIA

REACTIONS (2)
  - Malignant melanoma [Recovered/Resolved]
  - Diabetes mellitus [Unknown]
